FAERS Safety Report 21031282 (Version 1)
Quarter: 2022Q3

REPORT INFORMATION
  Report Type: Spontaneous
  Country: US (occurrence: None)
  Receive Date: 20220701
  Receipt Date: 20220701
  Transmission Date: 20221027
  Serious: No
  Sender: FDA-Public Use
  Company Number: US-ROCHE-3027959

PATIENT
  Sex: Male

DRUGS (8)
  1. ACTEMRA [Suspect]
     Active Substance: TOCILIZUMAB
     Indication: Hyperlipidaemia
     Route: 058
     Dates: start: 20200609
  2. ACTEMRA [Suspect]
     Active Substance: TOCILIZUMAB
  3. FOLIC ACID [Concomitant]
     Active Substance: FOLIC ACID
  4. LOSARTAN POTASSIUM [Concomitant]
     Active Substance: LOSARTAN POTASSIUM
  5. METHOTREXATE [Concomitant]
     Active Substance: METHOTREXATE
  6. NEXIUM [Concomitant]
     Active Substance: ESOMEPRAZOLE MAGNESIUM
  7. OTREXUP [Concomitant]
     Active Substance: METHOTREXATE
  8. TRICOR [Concomitant]
     Active Substance: FENOFIBRATE

REACTIONS (1)
  - COVID-19 [Unknown]
